FAERS Safety Report 10667176 (Version 1)
Quarter: 2014Q4

REPORT INFORMATION
  Report Type: Spontaneous
  Country: None (occurrence: None)
  Receive Date: 20141219
  Receipt Date: 20141219
  Transmission Date: 20150529
  Serious: No
  Sender: FDA-Public Use
  Company Number: None

PATIENT
  Age: 15 Year
  Sex: Female
  Weight: 63.5 kg

DRUGS (1)
  1. DEXEDRINE [Suspect]
     Active Substance: DEXTROAMPHETAMINE SULFATE
     Indication: EDUCATIONAL PROBLEM

REACTIONS (3)
  - Dizziness [None]
  - Dyspnoea [None]
  - Drug administration error [None]
